FAERS Safety Report 16799095 (Version 2)
Quarter: 2019Q3

REPORT INFORMATION
  Report Type: Spontaneous
  Country: US (occurrence: US)
  Receive Date: 20190912
  Receipt Date: 20190919
  Transmission Date: 20191005
  Serious: Yes (Death, Hospitalization, Other)
  Sender: FDA-Public Use
  Company Number: US-AMGEN-USASP2019147925

PATIENT

DRUGS (1)
  1. ENBREL [Suspect]
     Active Substance: ETANERCEPT
     Indication: PRODUCT USED FOR UNKNOWN INDICATION
     Dosage: 50 MILLIGRAM, QWK
     Route: 058

REACTIONS (14)
  - Myocardial infarction [Fatal]
  - Infection [Fatal]
  - Cardiac failure [Fatal]
  - Neoplasm malignant [Unknown]
  - Hypersensitivity [Unknown]
  - Haemorrhage [Unknown]
  - Pulmonary embolism [Unknown]
  - Drug ineffective [Unknown]
  - Refusal of treatment by patient [Unknown]
  - Cerebrovascular accident [Fatal]
  - Cardiovascular disorder [Fatal]
  - Deep vein thrombosis [Unknown]
  - Gastrointestinal perforation [Unknown]
  - Liver disorder [Unknown]
